FAERS Safety Report 4957812-5 (Version None)
Quarter: 2006Q1

REPORT INFORMATION
  Report Type: 
  Country: None (occurrence: None)
  Receive Date: 20060330
  Receipt Date: 20060321
  Transmission Date: 20060701
  Serious: Yes (Hospitalization)
  Sender: FDA-Public Use
  Company Number: 2006PK00582

PATIENT
  Age: 34 Year
  Sex: Female

DRUGS (13)
  1. SEROQUEL [Suspect]
     Route: 048
     Dates: start: 20050604, end: 20050614
  2. SEROQUEL [Suspect]
     Dosage: 400 TO 800 MG
     Route: 048
     Dates: start: 20050615, end: 20050621
  3. SEROQUEL [Suspect]
     Route: 048
     Dates: start: 20050622, end: 20050630
  4. SEROQUEL [Suspect]
     Route: 048
     Dates: start: 20050701, end: 20050707
  5. SEROQUEL [Suspect]
     Route: 048
     Dates: start: 20050708
  6. NEUROCIL [Suspect]
     Dosage: 75 TO 200 MG
     Route: 048
     Dates: start: 20050617, end: 20050621
  7. NEUROCIL [Suspect]
     Route: 048
     Dates: start: 20050622, end: 20050627
  8. NEUROCIL [Suspect]
     Dosage: 100 TO 0 MG
     Route: 048
     Dates: start: 20050628, end: 20050717
  9. TRILEPTAL [Concomitant]
     Route: 048
     Dates: start: 20050603, end: 20050621
  10. TRILEPTAL [Concomitant]
     Route: 048
     Dates: start: 20050622
  11. QUILONUM RETARD [Concomitant]
     Dates: end: 20050614
  12. QUILONUM RETARD [Concomitant]
     Route: 048
     Dates: start: 20050615, end: 20050704
  13. QUILONUM RETARD [Concomitant]
     Route: 048
     Dates: start: 20050705

REACTIONS (3)
  - AMENORRHOEA [None]
  - DRUG INTERACTION POTENTIATION [None]
  - GALACTORRHOEA [None]
